FAERS Safety Report 15301615 (Version 7)
Quarter: 2019Q1

REPORT INFORMATION
  Report Type: Spontaneous
  Country: US (occurrence: US)
  Receive Date: 20180821
  Receipt Date: 20190321
  Transmission Date: 20190417
  Serious: Yes (Other)
  Sender: FDA-Public Use
  Company Number: US-PFIZER INC-2018330886

PATIENT
  Age: 16 Year
  Sex: Female

DRUGS (7)
  1. AMIODARONE HCL [Suspect]
     Active Substance: AMIODARONE HYDROCHLORIDE
     Dosage: UNK (INFUSION AT 5 ?G/KG/MIN)
  2. AMIODARONE HCL [Suspect]
     Active Substance: AMIODARONE HYDROCHLORIDE
     Indication: ARRHYTHMIA
  3. EPINEPHRINE. [Concomitant]
     Active Substance: EPINEPHRINE
     Indication: PULSELESS ELECTRICAL ACTIVITY
     Dosage: UNK
  4. AMIODARONE HCL [Suspect]
     Active Substance: AMIODARONE HYDROCHLORIDE
     Indication: VENTRICULAR TACHYCARDIA
     Dosage: UNK (5 ?G/KG/MIN WITHOUT BOLUS, INFUSION)
  5. EPINEPHRINE. [Concomitant]
     Active Substance: EPINEPHRINE
     Indication: VENTRICULAR TACHYCARDIA
  6. AMIODARONE HCL [Suspect]
     Active Substance: AMIODARONE HYDROCHLORIDE
     Indication: ARRHYTHMIA
     Dosage: 150 MG, UNK (LOADING DOSE)
  7. AMIODARONE HCL [Suspect]
     Active Substance: AMIODARONE HYDROCHLORIDE
     Indication: VENTRICULAR TACHYCARDIA
     Dosage: UNK (INFUSION WAS CHANGED TO ORAL ON POD 32)
     Route: 048

REACTIONS (3)
  - Acute respiratory distress syndrome [Recovered/Resolved]
  - Pulmonary toxicity [Recovered/Resolved]
  - Pulmonary haemorrhage [Recovered/Resolved]
